FAERS Safety Report 8343761-1 (Version None)
Quarter: 2012Q2

REPORT INFORMATION
  Report Type: 
  Country: None (occurrence: None)
  Receive Date: 20120508
  Receipt Date: 20120430
  Transmission Date: 20120825
  Serious: Yes (Hospitalization)
  Sender: FDA-Public Use
  Company Number: US-BAYER-2011-029382

PATIENT
  Age: 23 Year
  Sex: Female
  Weight: 44.898 kg

DRUGS (6)
  1. HYDROCODONE BITARTRATE + ACETAMINOPHEN [Concomitant]
     Indication: PAIN
     Dosage: 5-500 MILLIGRAMS
     Route: 048
  2. PROMETHAZINE [Concomitant]
     Dosage: 25 MG, Q4HR
     Route: 054
  3. YAZ [Suspect]
     Indication: CONTRACEPTION
     Dosage: UNK
     Dates: start: 20060619, end: 20060715
  4. AZITHROMYCIN [Concomitant]
     Dosage: 250 MG, UNK
     Route: 048
  5. IBUPROFEN [Concomitant]
     Dosage: 400 MG, Q4HR
     Route: 048
  6. CHROMOGEN FORTE [Concomitant]
     Dosage: UNK UNK, BID
     Route: 048

REACTIONS (13)
  - ANXIETY [None]
  - VOMITING [None]
  - MENTAL IMPAIRMENT [None]
  - JUGULAR VEIN THROMBOSIS [None]
  - INTRACRANIAL VENOUS SINUS THROMBOSIS [None]
  - NAUSEA [None]
  - EMOTIONAL DISTRESS [None]
  - CEREBROVASCULAR ACCIDENT [None]
  - APHASIA [None]
  - PAIN [None]
  - GENERAL PHYSICAL HEALTH DETERIORATION [None]
  - HEADACHE [None]
  - MENTAL DISORDER [None]
